FAERS Safety Report 4966361-X (Version None)
Quarter: 2006Q1

REPORT INFORMATION
  Report Type: 
  Country: None (occurrence: None)
  Receive Date: 20060201
  Receipt Date: 20051115
  Transmission Date: 20060701
  Serious: No
  Sender: FDA-Public Use
  Company Number: 2005PV005095

PATIENT
  Age: 77 Year
  Sex: Male
  Weight: 117.9352 kg

DRUGS (11)
  1. BYETTA [Suspect]
     Indication: DIABETES MELLITUS NON-INSULIN-DEPENDENT
     Dosage: SEE IMAGE
     Route: 058
     Dates: start: 20051027, end: 20051110
  2. BYETTA [Suspect]
     Indication: DIABETES MELLITUS NON-INSULIN-DEPENDENT
     Dosage: SEE IMAGE
     Route: 058
     Dates: start: 20051111, end: 20051113
  3. BYETTA [Suspect]
     Indication: DIABETES MELLITUS NON-INSULIN-DEPENDENT
     Dosage: SEE IMAGE
     Route: 058
     Dates: start: 20051114
  4. HUMALOG MIX 75/25 [Concomitant]
  5. METFORMIN [Concomitant]
  6. AMARYL [Concomitant]
  7. GLUCOVANCE [Concomitant]
  8. GINGER FOOT PILLS [Concomitant]
  9. ACCUPRIL [Concomitant]
  10. ZETIA [Concomitant]
  11. ESTER-C [Concomitant]

REACTIONS (6)
  - ABDOMINAL PAIN [None]
  - BLOOD GLUCOSE INCREASED [None]
  - DYSGEUSIA [None]
  - DYSPEPSIA [None]
  - ERUCTATION [None]
  - FLATULENCE [None]
